FAERS Safety Report 11536922 (Version 1)
Quarter: 2015Q3

REPORT INFORMATION
  Report Type: Spontaneous
  Country: US (occurrence: None)
  Receive Date: 20150921
  Receipt Date: 20150921
  Transmission Date: 20151125
  Serious: Yes (Hospitalization, Other)
  Sender: FDA-Public Use
  Company Number: None

PATIENT
  Age: 92 Year
  Sex: Male
  Weight: 58.97 kg

DRUGS (1)
  1. PAXIL [Suspect]
     Active Substance: PAROXETINE HYDROCHLORIDE
     Dosage: TAKEN BY MOUTH
     Dates: start: 20150805, end: 20150908

REACTIONS (12)
  - Confusional state [None]
  - Urinary retention [None]
  - Fall [None]
  - Feeling abnormal [None]
  - Dysuria [None]
  - Wound [None]
  - Balance disorder [None]
  - Heart injury [None]
  - Blood sodium abnormal [None]
  - Decreased appetite [None]
  - Abnormal dreams [None]
  - Weight decreased [None]

NARRATIVE: CASE EVENT DATE: 20150908
